FAERS Safety Report 18554535 (Version 1)
Quarter: 2020Q4

REPORT INFORMATION
  Report Type: Spontaneous
  Country: SK (occurrence: SK)
  Receive Date: 20201127
  Receipt Date: 20201127
  Transmission Date: 20210114
  Serious: Yes (Hospitalization, Other)
  Sender: FDA-Public Use
  Company Number: SK-GLAXOSMITHKLINE-SK2020230223

PATIENT
  Age: 68 Year
  Sex: Female

DRUGS (2)
  1. LEVODOPA [Suspect]
     Active Substance: LEVODOPA
     Indication: GAIT DISTURBANCE
     Dosage: 300 MG
  2. ROPINIROLE. [Suspect]
     Active Substance: ROPINIROLE
     Indication: PARKINSON^S DISEASE
     Dosage: 8 MG

REACTIONS (3)
  - Delusion [Recovered/Resolved]
  - Hallucination, visual [Recovered/Resolved]
  - Acute psychosis [Recovered/Resolved]
